FAERS Safety Report 4709561-6 (Version None)
Quarter: 2005Q3

REPORT INFORMATION
  Report Type: 
  Country: None (occurrence: None)
  Receive Date: 20050706
  Receipt Date: 20050623
  Transmission Date: 20060218
  Serious: Yes (Death, Life-Threatening)
  Sender: FDA-Public Use
  Company Number: 2005083333

PATIENT
  Age: 54 Year
  Sex: Female

DRUGS (7)
  1. ADRIAMYCIN PFS [Suspect]
     Indication: BREAST CANCER METASTATIC
     Dosage: 30 MG, INTRAVENOUS
     Route: 042
     Dates: start: 20050517, end: 20050517
  2. ADRIAMYCIN PFS [Suspect]
     Indication: METASTASES TO LIVER
     Dosage: 30 MG, INTRAVENOUS
     Route: 042
     Dates: start: 20050517, end: 20050517
  3. CYCLOPHOSPHAMIDE [Concomitant]
  4. MEDICON (DEXTROMETHORPHAN HYDROBROMIDE) [Concomitant]
  5. LOXONIN (LOXOPROFEN SODIUM) [Concomitant]
  6. SELBEX (TEPRENONE) [Concomitant]
  7. ZOLPIDEM TARTRATE [Concomitant]

REACTIONS (12)
  - ALANINE AMINOTRANSFERASE INCREASED [None]
  - ANOREXIA [None]
  - ASPARTATE AMINOTRANSFERASE INCREASED [None]
  - BLOOD BILIRUBIN INCREASED [None]
  - CARDIAC ARREST [None]
  - CARDIAC TAMPONADE [None]
  - CONDITION AGGRAVATED [None]
  - DYSPNOEA [None]
  - INCORRECT DOSE ADMINISTERED [None]
  - LIVER DISORDER [None]
  - MALAISE [None]
  - PERICARDITIS [None]
